FAERS Safety Report 13854944 (Version 1)
Quarter: 2017Q3

REPORT INFORMATION
  Report Type: Spontaneous
  Country: NL (occurrence: NL)
  Receive Date: 20170810
  Receipt Date: 20170810
  Transmission Date: 20171127
  Serious: Yes (Hospitalization)
  Sender: FDA-Public Use
  Company Number: NL-LPDUSPRD-20171029

PATIENT
  Age: 46 Year
  Sex: Female

DRUGS (8)
  1. METOJECT [Concomitant]
     Active Substance: METHOTREXATE SODIUM
     Dosage: UNKNOWN
  2. FERINJECT [Suspect]
     Active Substance: FERRIC CARBOXYMALTOSE
     Dosage: 1000 MG
     Route: 065
     Dates: start: 20170614
  3. SALOFALK ZETPIL [Concomitant]
     Route: 065
  4. ETORICOXIB [Concomitant]
     Active Substance: ETORICOXIB
     Dosage: UNKOWN
  5. NEXIUM [Concomitant]
     Active Substance: ESOMEPRAZOLE MAGNESIUM
     Dosage: UNKNOWN
  6. GOLIMUMAB [Concomitant]
     Active Substance: GOLIMUMAB
     Dosage: UNKNOWN
  7. FOLIUMZUUR [Concomitant]
     Active Substance: FOLIC ACID
     Dosage: UNKNOWN
     Route: 065
  8. EUTHYROX [Concomitant]
     Active Substance: LEVOTHYROXINE SODIUM
     Dosage: UNKNOWN

REACTIONS (11)
  - Urticaria [Recovered/Resolved]
  - Muscular weakness [Not Recovered/Not Resolved]
  - Headache [Recovered/Resolved]
  - Erythema [Recovered/Resolved]
  - Swelling [Recovered/Resolved]
  - Discomfort [Recovered/Resolved]
  - Throat irritation [Recovered/Resolved]
  - Visual impairment [Recovered/Resolved]
  - Nausea [Recovered/Resolved]
  - Dermatitis exfoliative [Recovered/Resolved]
  - Fall [Recovered/Resolved]

NARRATIVE: CASE EVENT DATE: 20170623
